FAERS Safety Report 15524832 (Version 2)
Quarter: 2018Q4

REPORT INFORMATION
  Report Type: Spontaneous
  Country: US (occurrence: US)
  Receive Date: 20181019
  Receipt Date: 20181121
  Transmission Date: 20190205
  Serious: Yes (Other)
  Sender: FDA-Public Use
  Company Number: US-ALLERGAN-1849727US

PATIENT
  Age: 40 Year
  Sex: Female

DRUGS (3)
  1. VIIBRYD [Suspect]
     Active Substance: VILAZODONE HYDROCHLORIDE
     Indication: PRODUCT USED FOR UNKNOWN INDICATION
     Dosage: 20 MG, QD
     Route: 048
     Dates: end: 2017
  2. BYSTOLIC [Concomitant]
     Active Substance: NEBIVOLOL HYDROCHLORIDE
     Indication: PRODUCT USED FOR UNKNOWN INDICATION
     Dosage: UNK
     Route: 065
  3. LOSARTAN. [Concomitant]
     Active Substance: LOSARTAN
     Indication: PRODUCT USED FOR UNKNOWN INDICATION
     Dosage: UNK
     Route: 065

REACTIONS (8)
  - Electrocardiogram QT prolonged [Recovered/Resolved]
  - Peripheral swelling [Recovered/Resolved]
  - Wrong technique in product usage process [Unknown]
  - Crying [Recovered/Resolved]
  - Speech disorder [Recovered/Resolved]
  - Weight increased [Unknown]
  - Dyspnoea [Recovered/Resolved]
  - Discontinued product administered [Unknown]

NARRATIVE: CASE EVENT DATE: 2017
